FAERS Safety Report 7272443-2 (Version None)
Quarter: 2011Q1

REPORT INFORMATION
  Report Type: 
  Country: None (occurrence: None)
  Receive Date: 20110203
  Receipt Date: 20110202
  Transmission Date: 20110831
  Serious: Yes (Hospitalization)
  Sender: FDA-Public Use
  Company Number: DE-SANOFI-AVENTIS-2011SA006535

PATIENT
  Sex: Female

DRUGS (3)
  1. BISOPROLOL [Concomitant]
  2. MULTAQ [Suspect]
     Route: 048
     Dates: start: 20110103, end: 20110106
  3. COAPROVEL [Concomitant]

REACTIONS (4)
  - BLOOD CREATININE INCREASED [None]
  - RENAL FAILURE [None]
  - BLOOD UREA INCREASED [None]
  - CREATININE RENAL CLEARANCE DECREASED [None]
